FAERS Safety Report 9767049 (Version 1)
Quarter: 2013Q4

REPORT INFORMATION
  Report Type: Spontaneous
  Country: US (occurrence: US)
  Receive Date: 20131217
  Receipt Date: 20131217
  Transmission Date: 20140711
  Serious: No
  Sender: FDA-Public Use
  Company Number: US-GLAXOSMITHKLINE-A1037761A

PATIENT
  Age: 57 Year
  Sex: Male

DRUGS (1)
  1. VOTRIENT [Suspect]
     Indication: PRODUCT USED FOR UNKNOWN INDICATION
     Dosage: 800MG PER DAY
     Route: 048
     Dates: start: 20130709

REACTIONS (11)
  - Diarrhoea [Unknown]
  - Flatulence [Unknown]
  - Scab [Recovering/Resolving]
  - Genital ulceration [Recovering/Resolving]
  - Pain [Recovering/Resolving]
  - Ill-defined disorder [Recovering/Resolving]
  - Balanoposthitis [Recovering/Resolving]
  - Penile pain [Recovering/Resolving]
  - Dysuria [Recovering/Resolving]
  - Eye pain [Unknown]
  - Sensation of pressure [Unknown]
